FAERS Safety Report 25933704 (Version 1)
Quarter: 2025Q4

REPORT INFORMATION
  Report Type: Spontaneous
  Country: US (occurrence: US)
  Receive Date: 20251017
  Receipt Date: 20251017
  Transmission Date: 20260118
  Serious: No
  Sender: EXELA PHARMA SCIENCES
  Company Number: US-EXELAPHARMA-2025EXLA00193

PATIENT

DRUGS (1)
  1. AKOVAZ [Suspect]
     Active Substance: EPHEDRINE SULFATE
     Indication: Product used for unknown indication

REACTIONS (6)
  - Product closure removal difficult [Unknown]
  - Product container seal issue [Unknown]
  - Wrong patient received product [Unknown]
  - Multiple use of single-use product [Unknown]
  - Incorrect dose administered [Unknown]
  - No adverse event [Unknown]
